FAERS Safety Report 5535261-9 (Version None)
Quarter: 2007Q4

REPORT INFORMATION
  Report Type: 
  Country: None (occurrence: None)
  Receive Date: 20071206
  Receipt Date: 20071128
  Transmission Date: 20080405
  Serious: Yes (Death)
  Sender: FDA-Public Use
  Company Number: US-KINGPHARMUSA00001-K200701530

PATIENT

DRUGS (3)
  1. FLORINEF [Suspect]
     Indication: AMYLOIDOSIS
     Dosage: .4 MG, QD
     Route: 048
     Dates: start: 20050101, end: 20070101
  2. IMOSEC    /00384301/ [Concomitant]
  3. VITAMINS [Concomitant]

REACTIONS (2)
  - DEHYDRATION [None]
  - DISEASE PROGRESSION [None]
